FAERS Safety Report 21666072 (Version 2)
Quarter: 2023Q1

REPORT INFORMATION
  Report Type: Spontaneous
  Country: JP (occurrence: JP)
  Receive Date: 20221201
  Receipt Date: 20230106
  Transmission Date: 20230418
  Serious: Yes (Hospitalization)
  Sender: FDA-Public Use
  Company Number: JP-CHUGAI-2022047514

PATIENT
  Age: 72 Year
  Sex: Male
  Weight: 62.5 kg

DRUGS (7)
  1. TECENTRIQ [Suspect]
     Active Substance: ATEZOLIZUMAB
     Indication: Hepatocellular carcinoma
     Dosage: 1200 MILLIGRAM, ONCE/3WEEKS
     Route: 041
     Dates: start: 20220401
  2. AVASTIN [Suspect]
     Active Substance: BEVACIZUMAB
     Indication: Hepatocellular carcinoma
     Dosage: 7.5 MILLIGRAM, ONCE/3WEEKS
     Route: 041
     Dates: start: 20220401
  3. AVASTIN [Suspect]
     Active Substance: BEVACIZUMAB
     Dosage: 930 MILLIGRAM, ONCE/3WEEKS
     Route: 041
  4. REPAGLINIDE [Concomitant]
     Active Substance: REPAGLINIDE
     Route: 065
     Dates: start: 202008
  5. TRULICITY [Concomitant]
     Active Substance: DULAGLUTIDE
     Route: 065
     Dates: start: 202008
  6. AMLODIPINE BESYLATE\AZILSARTAN [Concomitant]
     Active Substance: AMLODIPINE BESYLATE\AZILSARTAN
     Dates: start: 202007
  7. FEBUXOSTAT [Concomitant]
     Active Substance: FEBUXOSTAT
     Dates: start: 202007

REACTIONS (1)
  - Hypophysitis [Recovered/Resolved]

NARRATIVE: CASE EVENT DATE: 20221008
